FAERS Safety Report 11634711 (Version 1)
Quarter: 2015Q4

REPORT INFORMATION
  Report Type: Spontaneous
  Country: US (occurrence: US)
  Receive Date: 20151015
  Receipt Date: 20151015
  Transmission Date: 20160304
  Serious: No
  Sender: FDA-Public Use
  Company Number: GXBR2015US001924

PATIENT
  Age: 59 Year
  Sex: Female

DRUGS (1)
  1. NAPROXEN TABLETS USP [Suspect]
     Active Substance: NAPROXEN
     Indication: PAIN IN EXTREMITY
     Dosage: UNK DF, UNK
     Route: 048

REACTIONS (1)
  - Abdominal discomfort [Unknown]
